FAERS Safety Report 10086307 (Version 1)
Quarter: 2014Q2

REPORT INFORMATION
  Report Type: Spontaneous
  Country: US (occurrence: US)
  Receive Date: 20140418
  Receipt Date: 20140418
  Transmission Date: 20141212
  Serious: Yes (Congenital Anomaly, Other)
  Sender: FDA-Public Use
  Company Number: US-PFIZER INC-2014104276

PATIENT
  Sex: Male

DRUGS (24)
  1. IBUPROFEN [Suspect]
     Dosage: 800 MG, UNK
     Route: 064
     Dates: start: 20020901
  2. ZOLOFT [Suspect]
     Indication: DEPRESSION
     Dosage: UNK
     Route: 064
     Dates: start: 20010920, end: 20021010
  3. ZOLOFT [Suspect]
     Indication: ANXIETY
  4. HYDROXYZINE PAMOATE [Suspect]
     Dosage: UNK
     Route: 064
     Dates: start: 20030211, end: 20030606
  5. ZITHROMAX [Suspect]
     Dosage: UNK
     Route: 064
     Dates: start: 20030226
  6. AMOXICILLIN [Suspect]
     Indication: FURUNCLE
     Dosage: UNK
     Route: 064
     Dates: start: 20020518
  7. AMOXICILLIN [Suspect]
     Dosage: UNK
     Dates: start: 20030204
  8. SPIRONOLACTONE [Suspect]
     Dosage: UNK
     Route: 064
     Dates: start: 20020617, end: 20021114
  9. DOXEPIN HCL [Suspect]
     Dosage: UNK
     Route: 064
     Dates: start: 20020404, end: 20021114
  10. TOPAMAX [Suspect]
     Indication: MIGRAINE
     Dosage: UNK
     Route: 064
     Dates: start: 2001, end: 2002
  11. TOPAMAX [Suspect]
     Indication: HEADACHE
     Dosage: UNK
     Route: 064
  12. TOPAMAX [Suspect]
     Indication: ANXIETY
     Dosage: UNK
     Route: 064
  13. TOPAMAX [Suspect]
     Indication: DEPRESSION
     Dosage: UNK
     Route: 064
  14. MAXALT [Suspect]
     Indication: MIGRAINE
     Dosage: UNK
     Route: 064
  15. MECLIZINE [Suspect]
     Dosage: UNK
     Route: 064
     Dates: start: 20030204
  16. BACTRIM [Suspect]
     Dosage: UNK
     Route: 064
     Dates: start: 20021212
  17. AMITRIPTYLINE HYDROCHLORIDE [Suspect]
     Dosage: UNK
     Route: 064
     Dates: start: 20011105, end: 20021114
  18. PRIMACARE [Suspect]
     Dosage: UNK
     Route: 064
     Dates: start: 20021219
  19. ERY-TAB [Suspect]
     Dosage: UNK
     Route: 064
     Dates: start: 20010920, end: 20021114
  20. PHENAZOPYRIDINE [Suspect]
     Dosage: UNK
     Route: 064
     Dates: start: 20021230
  21. ZYRTEC [Suspect]
     Dosage: 10 MG, UNK
     Route: 064
     Dates: start: 20001116, end: 20030224
  22. FERROUS SULFATE [Concomitant]
     Dosage: UNK
     Route: 064
     Dates: start: 20030509
  23. IRON [Concomitant]
     Dosage: UNK
     Route: 064
  24. PRENATAL VITAMINS [Concomitant]
     Dosage: UNK
     Route: 064

REACTIONS (3)
  - Maternal exposure during pregnancy [Recovered/Resolved]
  - Ear disorder [Unknown]
  - Aggression [Unknown]
